FAERS Safety Report 15196166 (Version 1)
Quarter: 2018Q3

REPORT INFORMATION
  Report Type: Spontaneous
  Country: US (occurrence: US)
  Receive Date: 20180626
  Receipt Date: 20180626
  Transmission Date: 20181010
  Serious: Yes (Other)
  Sender: FDA-Public Use
  Company Number: None

PATIENT
  Age: 71 Year
  Sex: Female
  Weight: 49.5 kg

DRUGS (19)
  1. CALCIUM [Concomitant]
     Active Substance: CALCIUM
  2. POLICOSINOL [Concomitant]
  3. DHEA?25 [Concomitant]
  4. STRONTIUM [Concomitant]
     Active Substance: STRONTIUM
  5. VITAMIN B12 [Concomitant]
     Active Substance: CYANOCOBALAMIN
  6. XIIDRA [Suspect]
     Active Substance: LIFITEGRAST
     Indication: DRY EYE
     Dosage: ?          QUANTITY:60 SINGLE USE;?
     Route: 047
     Dates: start: 20180606, end: 20180607
  7. BIOSIL [Concomitant]
  8. SWISS KRISS [Concomitant]
  9. CHROMIUM [Concomitant]
     Active Substance: CHROMIC CHLORIDE\CHROMIUM
  10. VITAMIN E [Concomitant]
     Active Substance: .ALPHA.-TOCOPHEROL
  11. IMMUN DAILY LIMITLESS [Concomitant]
  12. PROBIOTICS [Concomitant]
     Active Substance: PROBIOTICS NOS
  13. L?TYROSINE [Concomitant]
     Active Substance: TYROSINE
  14. ZINC. [Concomitant]
     Active Substance: ZINC
  15. D?3 [Concomitant]
     Active Substance: CHOLECALCIFEROL
  16. VITAMIN B COMPLEX [Concomitant]
     Active Substance: CYANOCOBALAMIN\DEXPANTHENOL\NIACINAMIDE\PYRIDOXINE HYDROCHLORIDE\RIBOFLAVIN 5^-PHOSPHATE SODIUM\THIAMINE HYDROCHLORIDE\VITAMIN B COMPLEX
  17. COMPOUNDED THYROID [Concomitant]
  18. FISH OIL [Concomitant]
     Active Substance: FISH OIL
  19. FLAX SEED [Concomitant]
     Active Substance: FLAX SEED

REACTIONS (4)
  - Dizziness [None]
  - Vomiting [None]
  - Nausea [None]
  - Feeling abnormal [None]

NARRATIVE: CASE EVENT DATE: 20180607
